FAERS Safety Report 8141924-1 (Version None)
Quarter: 2012Q1

REPORT INFORMATION
  Report Type: 
  Country: None (occurrence: None)
  Receive Date: 20120216
  Receipt Date: 20120213
  Transmission Date: 20120608
  Serious: Yes (Other)
  Sender: FDA-Public Use
  Company Number: US-GLAXOSMITHKLINE-A0965693A

PATIENT
  Age: 39 Year
  Sex: Male

DRUGS (7)
  1. LAMICTAL [Suspect]
     Indication: TEMPORAL LOBE EPILEPSY
     Route: 048
     Dates: start: 19980101
  2. PAXIL [Suspect]
     Indication: DEPRESSION
     Dosage: 40MG PER DAY
     Route: 048
     Dates: start: 19950101
  3. REQUIP [Suspect]
     Indication: RESTLESS LEGS SYNDROME
     Dosage: 3MG AT NIGHT
     Route: 048
     Dates: start: 20080901, end: 20081001
  4. ZYPREXA [Concomitant]
  5. WELLBUTRIN [Suspect]
     Indication: DEPRESSION
     Route: 048
     Dates: start: 19960101, end: 20000101
  6. TOPAMAX [Concomitant]
  7. BUSPAR [Suspect]
     Indication: PRODUCT USED FOR UNKNOWN INDICATION

REACTIONS (11)
  - SEXUAL DYSFUNCTION [None]
  - INSOMNIA [None]
  - FEAR [None]
  - DRUG INTERACTION [None]
  - ADVERSE DRUG REACTION [None]
  - WEIGHT INCREASED [None]
  - DRUG INTOLERANCE [None]
  - DRUG DEPENDENCE [None]
  - DEPENDENCE [None]
  - NERVOUSNESS [None]
  - DRUG INEFFECTIVE [None]
